FAERS Safety Report 13649683 (Version 2)
Quarter: 2017Q2

REPORT INFORMATION
  Report Type: Report from Study
  Country: CA (occurrence: CA)
  Receive Date: 20170614
  Receipt Date: 20170616
  Transmission Date: 20170830
  Serious: Yes (Other)
  Sender: FDA-Public Use
  Company Number: CA-ROCHE-1847210

PATIENT
  Age: 33 Year
  Sex: Female

DRUGS (7)
  1. PREDNISONE. [Concomitant]
     Active Substance: PREDNISONE
     Route: 065
  2. RITUXAN [Suspect]
     Active Substance: RITUXIMAB
     Indication: JUVENILE IDIOPATHIC ARTHRITIS
     Route: 042
     Dates: start: 20160606, end: 20160621
  3. DIPHENHYDRAMINE HCL [Concomitant]
     Active Substance: DIPHENHYDRAMINE HYDROCHLORIDE
     Indication: PREMEDICATION
     Route: 048
     Dates: start: 20160606, end: 20160621
  4. ACTEMRA [Suspect]
     Active Substance: TOCILIZUMAB
     Indication: JUVENILE IDIOPATHIC ARTHRITIS
     Dosage: 4 MG/KG
     Route: 042
     Dates: start: 20161207
  5. ACTEMRA [Suspect]
     Active Substance: TOCILIZUMAB
     Dosage: 6 MG/KG
     Route: 042
     Dates: start: 20170607
  6. ACETAMINOPHEN. [Concomitant]
     Active Substance: ACETAMINOPHEN
     Indication: PREMEDICATION
     Route: 048
     Dates: start: 20160606, end: 20160621
  7. METHYLPREDNISOLONE. [Concomitant]
     Active Substance: METHYLPREDNISOLONE
     Indication: PREMEDICATION
     Route: 042
     Dates: start: 20160606, end: 20160621

REACTIONS (8)
  - Lung disorder [Recovered/Resolved]
  - Arthralgia [Unknown]
  - Musculoskeletal stiffness [Unknown]
  - Anxiety [Unknown]
  - C-reactive protein increased [Unknown]
  - Depression [Not Recovered/Not Resolved]
  - Joint swelling [Unknown]
  - Inflammation [Unknown]

NARRATIVE: CASE EVENT DATE: 20170607
